FAERS Safety Report 9094667 (Version 1)
Quarter: 2013Q1

REPORT INFORMATION
  Report Type: Spontaneous
  Country: US (occurrence: US)
  Receive Date: 20130219
  Receipt Date: 20130219
  Transmission Date: 20140127
  Serious: No
  Sender: FDA-Public Use
  Company Number: US-009507513-1302USA007625

PATIENT
  Age: 86 Year
  Sex: Female

DRUGS (9)
  1. ASMANEX TWISTHALER [Suspect]
     Dosage: 220 MCG/5 MCG/ ONE PUFF ONCE DAILY
     Route: 055
     Dates: start: 201002
  2. LIPITOR [Concomitant]
  3. SPIRIVA [Concomitant]
  4. ISOSORBIDE [Concomitant]
  5. NITROSTAT [Concomitant]
  6. PLAVIX [Concomitant]
  7. LOESTRIN [Concomitant]
  8. JANUVIA [Concomitant]
  9. AMLODIPINE [Concomitant]

REACTIONS (4)
  - Dyspnoea [Recovered/Resolved]
  - Dyspnoea [Recovered/Resolved]
  - Drug dose omission [Unknown]
  - Product quality issue [Unknown]
